FAERS Safety Report 7214768-2 (Version None)
Quarter: 2011Q1

REPORT INFORMATION
  Report Type: 
  Country: None (occurrence: None)
  Receive Date: 20110107
  Receipt Date: 20100202
  Transmission Date: 20110831
  Serious: No
  Sender: FDA-Public Use
  Company Number: A0842607A

PATIENT
  Age: 65 Year
  Sex: Female

DRUGS (12)
  1. VITAMIN E [Concomitant]
  2. LOVAZA [Concomitant]
  3. AZOR [Concomitant]
  4. ASCORBIC ACID [Concomitant]
  5. CARVEDILOL [Concomitant]
  6. UNKNOWN BLOOD PRESSURE PILL [Concomitant]
  7. PRENATAL VITAMINS [Concomitant]
  8. SYNTHROID [Concomitant]
  9. ALPRAZOLAM [Concomitant]
  10. VITAMIN D [Concomitant]
  11. CALCIUM [Concomitant]
  12. LOVAZA [Suspect]
     Dosage: 1G TWICE PER DAY
     Route: 048
     Dates: start: 20091201, end: 20100125

REACTIONS (2)
  - ERUCTATION [None]
  - ABDOMINAL PAIN UPPER [None]
